FAERS Safety Report 4541909-8 (Version None)
Quarter: 2004Q4

REPORT INFORMATION
  Report Type: 
  Country: None (occurrence: None)
  Receive Date: 20041229
  Receipt Date: 20041229
  Transmission Date: 20050328
  Serious: Yes (Life-Threatening)
  Sender: FDA-Public Use
  Company Number: None

PATIENT
  Sex: Male
  Weight: 86.1834 kg

DRUGS (1)
  1. ZOLOFT [Suspect]
     Indication: MAJOR DEPRESSION
     Dosage: 100 DAILY  ORAL
     Route: 048
     Dates: start: 20040210, end: 20041201

REACTIONS (7)
  - AGGRESSION [None]
  - DRUG WITHDRAWAL SYNDROME [None]
  - INFLUENZA [None]
  - MOTOR DYSFUNCTION [None]
  - PAIN [None]
  - PYREXIA [None]
  - SUICIDAL IDEATION [None]
